FAERS Safety Report 14281026 (Version 2)
Quarter: 2020Q2

REPORT INFORMATION
  Report Type: Spontaneous
  Country: US (occurrence: US)
  Receive Date: 20171213
  Receipt Date: 20200528
  Transmission Date: 20200713
  Serious: Yes (Death, Other)
  Sender: FDA-Public Use
  Company Number: US-009507513-1712USA006291

PATIENT
  Sex: Female

DRUGS (8)
  1. GEMZAR [Suspect]
     Active Substance: GEMCITABINE HYDROCHLORIDE
     Dosage: UNK
     Dates: start: 2016
  2. JANUVIA [Suspect]
     Active Substance: SITAGLIPTIN PHOSPHATE
     Dosage: 100 MG, EVERY MORNING
     Route: 048
     Dates: start: 201501
  3. JANUMET [Suspect]
     Active Substance: METFORMIN HYDROCHLORIDE\SITAGLIPTIN PHOSPHATE
     Dosage: 500/1000, TWICE A DAY
     Route: 048
     Dates: start: 201409
  4. ACTONEL [Concomitant]
     Active Substance: RISEDRONATE SODIUM
     Indication: OSTEOPOROSIS
     Dosage: UNK
     Dates: start: 2007, end: 2013
  5. JANUMET [Suspect]
     Active Substance: METFORMIN HYDROCHLORIDE\SITAGLIPTIN PHOSPHATE
     Dosage: 50/500, TWICE A DAY
     Route: 048
     Dates: start: 20140425, end: 201409
  6. JANUVIA [Suspect]
     Active Substance: SITAGLIPTIN PHOSPHATE
     Dosage: UNK
     Route: 048
     Dates: start: 20140126, end: 20140420
  7. ABRAXANE [Suspect]
     Active Substance: PACLITAXEL
     Dosage: UNK
     Dates: start: 2016
  8. METFORMIN [Suspect]
     Active Substance: METFORMIN HYDROCHLORIDE
     Dosage: UNK

REACTIONS (13)
  - Pancreatic duct dilatation [Unknown]
  - Nephrolithiasis [Unknown]
  - Drug ineffective [Unknown]
  - Aortic arteriosclerosis [Unknown]
  - Diarrhoea [Unknown]
  - Diabetes mellitus inadequate control [Unknown]
  - Cancer fatigue [Unknown]
  - Neuropathy peripheral [Unknown]
  - Hypercalcaemia [Unknown]
  - Hypomagnesaemia [Unknown]
  - Pancreatic carcinoma metastatic [Fatal]
  - Asthenia [Unknown]
  - Nausea [Unknown]

NARRATIVE: CASE EVENT DATE: 201410
